FAERS Safety Report 10231448 (Version 1)
Quarter: 2014Q2

REPORT INFORMATION
  Report Type: Spontaneous
  Country: IT (occurrence: IT)
  Receive Date: 20140611
  Receipt Date: 20140611
  Transmission Date: 20141212
  Serious: Yes (Other)
  Sender: FDA-Public Use
  Company Number: IT-BAXTER-2014BAX029489

PATIENT
  Age: 67 Year
  Sex: Female

DRUGS (11)
  1. SEVOFLURANE BAXTER [Suspect]
     Indication: MAINTENANCE OF ANAESTHESIA
     Dosage: END-TIDAL CONCENTRATION 1.3-1.4%
     Route: 065
  2. LORAZEPAM [Suspect]
     Indication: PREMEDICATION
     Route: 060
  3. PROPOFOL [Suspect]
     Indication: GENERAL ANAESTHESIA
     Route: 065
  4. REMIFENTANIL [Suspect]
     Indication: GENERAL ANAESTHESIA
     Dosage: EFFECT-SITE CONCENTRATION CE 1-3 NG/ML
     Route: 065
  5. REMIFENTANIL [Suspect]
     Dosage: TCI, CE 1 NG/ML MG
     Route: 065
  6. ROCURONIUM [Suspect]
     Indication: GENERAL ANAESTHESIA
     Route: 065
  7. BUPIVACAINE [Suspect]
     Indication: GENERAL ANAESTHESIA
     Route: 040
  8. BUPIVACAINE [Suspect]
     Dosage: 4-6 ML/H MG
     Route: 065
  9. BISOPROLOL [Concomitant]
     Indication: HYPERTENSION
     Route: 065
  10. HYDROCHLOROTHIAZIDE [Concomitant]
     Indication: HYPERTENSION
     Route: 065
  11. DOXAZOSIN [Concomitant]
     Indication: HYPERTENSION
     Route: 065

REACTIONS (1)
  - Arteriospasm coronary [Unknown]
